FAERS Safety Report 4621864-2 (Version None)
Quarter: 2005Q1

REPORT INFORMATION
  Report Type: 
  Country: None (occurrence: None)
  Receive Date: 20050329
  Receipt Date: 20040203
  Transmission Date: 20050727
  Serious: Yes (Other)
  Sender: FDA-Public Use
  Company Number: 9892

PATIENT
  Age: 46 Year
  Sex: Female

DRUGS (2)
  1. METHOTREXATE [Suspect]
  2. ETANERCEPT [Suspect]
     Dosage: 25 MG 2/WK
     Dates: start: 20020121

REACTIONS (4)
  - CARDIOMYOPATHY [None]
  - MASTOIDITIS [None]
  - MENINGITIS PNEUMOCOCCAL [None]
  - SEPSIS [None]
